FAERS Safety Report 14154678 (Version 1)
Quarter: 2017Q4

REPORT INFORMATION
  Report Type: Spontaneous
  Country: FR (occurrence: FR)
  Receive Date: 20171102
  Receipt Date: 20171102
  Transmission Date: 20180321
  Serious: Yes (Hospitalization)
  Sender: FDA-Public Use
  Company Number: FR-TEVA-821478ROM

PATIENT
  Age: 20 Year
  Sex: Female

DRUGS (5)
  1. FLUCONAZOLE KABI [Suspect]
     Active Substance: FLUCONAZOLE
     Indication: FUNGAL INFECTION
     Dosage: 100 MILLIGRAM DAILY;
     Route: 042
     Dates: start: 20171004, end: 20171007
  2. ERYTHROMYCINE [Suspect]
     Active Substance: ERYTHROMYCIN
     Indication: INFECTION
     Dosage: 800 MILLIGRAM DAILY;
     Route: 042
     Dates: start: 20170928, end: 20171009
  3. PANTOPRAZOLE SODIUM. [Suspect]
     Active Substance: PANTOPRAZOLE SODIUM
     Indication: DYSPEPSIA
     Dosage: 40 MILLIGRAM DAILY;
     Route: 042
     Dates: start: 20171003, end: 20171008
  4. PRIMPERAN [Suspect]
     Active Substance: METOCLOPRAMIDE HYDROCHLORIDE
     Indication: NAUSEA
     Dosage: 15 MILLIGRAM DAILY;
     Route: 042
     Dates: start: 20171005, end: 20171009
  5. PARACETAMOL PANPHARMA [Suspect]
     Active Substance: ACETAMINOPHEN
     Indication: PAIN
     Dosage: 3 GRAM DAILY;
     Route: 042
     Dates: start: 20171007, end: 20171009

REACTIONS (3)
  - Condition aggravated [Recovering/Resolving]
  - Hepatocellular injury [Recovering/Resolving]
  - Cholestasis [Recovering/Resolving]

NARRATIVE: CASE EVENT DATE: 20171009
